FAERS Safety Report 4752676-7 (Version None)
Quarter: 2005Q3

REPORT INFORMATION
  Report Type: 
  Country: None (occurrence: None)
  Receive Date: 20050824
  Receipt Date: 20050816
  Transmission Date: 20060218
  Serious: Yes (Other)
  Sender: FDA-Public Use
  Company Number: 2005116646

PATIENT
  Sex: Male
  Weight: 76.6579 kg

DRUGS (6)
  1. CELEBREX [Suspect]
     Indication: ARTHRITIS
     Dosage: 200 MG (200 MG, DAILY AS NEEDED), ORAL
     Route: 048
  2. CELEBREX [Suspect]
     Indication: BACK PAIN
     Dosage: 200 MG (200 MG, DAILY AS NEEDED), ORAL
     Route: 048
  3. TERAZOSIN (TERAZOSIN) [Concomitant]
  4. PREVACID [Concomitant]
  5. LIPITOR [Concomitant]
  6. AMITRIPTYLINE HCL [Concomitant]

REACTIONS (6)
  - BACK PAIN [None]
  - POOR QUALITY DRUG ADMINISTERED [None]
  - POST PROCEDURAL COMPLICATION [None]
  - PROCEDURAL COMPLICATION [None]
  - URINARY TRACT DISORDER [None]
  - WEIGHT DECREASED [None]
